FAERS Safety Report 5469892-1 (Version None)
Quarter: 2007Q3

REPORT INFORMATION
  Report Type: 
  Country: None (occurrence: None)
  Receive Date: 20070927
  Receipt Date: 20070918
  Transmission Date: 20080115
  Serious: Yes (Hospitalization)
  Sender: FDA-Public Use
  Company Number: BR-SHR-BR-2007-027997

PATIENT
  Age: 40 Year
  Sex: Female

DRUGS (12)
  1. BETAFERON [Suspect]
     Dosage: 1 ML, EVERY 2D
     Route: 058
     Dates: start: 20050613, end: 20050801
  2. BETAFERON [Suspect]
     Dosage: UNK, EVERY 2D
     Route: 058
     Dates: end: 20060531
  3. CARBAMAZEPINE [Concomitant]
     Dosage: 600 MG, 3X/DAY
     Route: 048
     Dates: start: 20050811, end: 20060501
  4. BACLOFEN [Concomitant]
     Dosage: 10 MG, 2X/DAY
     Route: 048
     Dates: start: 20041229, end: 20050701
  5. BACLOFEN [Concomitant]
     Dosage: 10 MG, 1X/DAY
     Route: 048
     Dates: start: 20050701, end: 20050801
  6. BACLOFEN [Concomitant]
     Dosage: 20 MG, 2X/DAY
     Route: 048
     Dates: start: 20051001, end: 20051101
  7. BACLOFEN [Concomitant]
     Dosage: 30 MG, 3X/DAY
     Route: 048
     Dates: start: 20051101, end: 20060730
  8. PREDNISONE [Concomitant]
     Dosage: 10 MG, 1X/DAY
     Route: 048
     Dates: start: 20041229, end: 20050801
  9. ACETAMINOPHEN [Concomitant]
     Indication: PAIN
     Dosage: 750 MG, AS REQ'D
     Route: 048
     Dates: start: 20041229, end: 20060614
  10. IBUPROFEN [Concomitant]
     Indication: PROPHYLAXIS
     Dosage: 400 MG, UNK
     Route: 048
     Dates: start: 20050613, end: 20050802
  11. IBUPROFEN [Concomitant]
     Dosage: 200 MG, 1X/DAY
     Route: 048
     Dates: start: 20050803, end: 20051201
  12. FERROUS SULFATE TAB [Concomitant]
     Dosage: 20 GTT, 1X/DAY
     Route: 048
     Dates: start: 20050710, end: 20051201

REACTIONS (3)
  - HYPOAESTHESIA [None]
  - PARAPLEGIA [None]
  - URINARY TRACT INFECTION [None]
